FAERS Safety Report 14668414 (Version 1)
Quarter: 2018Q1

REPORT INFORMATION
  Report Type: Spontaneous
  Country: CA (occurrence: CA)
  Receive Date: 20180322
  Receipt Date: 20180322
  Transmission Date: 20180509
  Serious: Yes (Disabling, Other)
  Sender: FDA-Public Use
  Company Number: CA-BAYER-2018-051599

PATIENT
  Age: 23 Year
  Sex: Female
  Weight: 68.93 kg

DRUGS (2)
  1. MIRENA [Suspect]
     Active Substance: LEVONORGESTREL
  2. MIRENA [Suspect]
     Active Substance: LEVONORGESTREL
     Indication: CONTRACEPTION
     Dosage: 20 MCG/24HR, CONT
     Route: 015

REACTIONS (9)
  - Anhedonia [Unknown]
  - Aptyalism [Unknown]
  - Fatigue [Unknown]
  - Insomnia [Unknown]
  - Abdominal pain [Unknown]
  - Depression [Unknown]
  - Ovarian cyst [Unknown]
  - Mood swings [Unknown]
  - Anxiety [Unknown]
